FAERS Safety Report 16017525 (Version 1)
Quarter: 2019Q1

REPORT INFORMATION
  Report Type: Spontaneous
  Country: US (occurrence: US)
  Receive Date: 20190228
  Receipt Date: 20190228
  Transmission Date: 20190418
  Serious: No
  Sender: FDA-Public Use
  Company Number: US-MYLANLABS-2019M1014243

PATIENT
  Sex: Female
  Weight: 77.1 kg

DRUGS (3)
  1. CELEBREX [Concomitant]
     Active Substance: CELECOXIB
  2. LIDOCAINE PATCH [Suspect]
     Active Substance: LIDOCAINE
     Indication: NECK PAIN
     Dosage: UNK
     Route: 003
  3. HYDROCODONE [Concomitant]
     Active Substance: HYDROCODONE
     Dosage: 7.5/325 MG

REACTIONS (5)
  - Discomfort [Unknown]
  - Off label use [Unknown]
  - Condition aggravated [Unknown]
  - Neck pain [Unknown]
  - Product quality issue [Unknown]
